FAERS Safety Report 8609956-4 (Version None)
Quarter: 2012Q3

REPORT INFORMATION
  Report Type: 
  Country: None (occurrence: None)
  Receive Date: 20120821
  Receipt Date: 20120808
  Transmission Date: 20120928
  Serious: Yes (Other)
  Sender: FDA-Public Use
  Company Number: IT-MYLANLABS-2012S1016467

PATIENT
  Age: 40 Year
  Sex: Female

DRUGS (6)
  1. RANITIDINE HCL [Concomitant]
     Indication: PRODUCT USED FOR UNKNOWN INDICATION
  2. PACLITAXEL [Suspect]
     Indication: BREAST CANCER METASTATIC
     Route: 042
     Dates: start: 20120705, end: 20120730
  3. EPIRUBICIN HYDROCHLORIDE [Concomitant]
     Indication: PRODUCT USED FOR UNKNOWN INDICATION
     Dates: start: 20120705, end: 20120730
  4. ONDANSETRON [Concomitant]
     Indication: PRODUCT USED FOR UNKNOWN INDICATION
  5. TRIMETON /00072502/ [Concomitant]
     Indication: PRODUCT USED FOR UNKNOWN INDICATION
  6. SOLU-CORTEF [Concomitant]
     Indication: PRODUCT USED FOR UNKNOWN INDICATION

REACTIONS (4)
  - SCOTOMA [None]
  - ABDOMINAL PAIN UPPER [None]
  - ERYTHEMA [None]
  - GENERALISED ERYTHEMA [None]
